FAERS Safety Report 20546433 (Version 1)
Quarter: 2022Q1

REPORT INFORMATION
  Report Type: Report from Study
  Country: DE (occurrence: DE)
  Receive Date: 20220303
  Receipt Date: 20220303
  Transmission Date: 20220423
  Serious: Yes (Death, Other)
  Sender: FDA-Public Use
  Company Number: DE-SA-SAC20211025000386

PATIENT
  Age: 48 Year
  Sex: Male

DRUGS (88)
  1. ETOPOSIDE [Suspect]
     Active Substance: ETOPOSIDE
     Indication: Adverse event
     Dosage: UNK, TOTAL,THERAPY  END DATE: ASKED BUT UNKNOWN
     Route: 042
     Dates: start: 20210122
  2. ETOPOSIDE [Suspect]
     Active Substance: ETOPOSIDE
     Dosage: 494.52 MILLIGRAM DAILY;
     Route: 042
     Dates: start: 20200113, end: 20201016
  3. MELPHALAN [Suspect]
     Active Substance: MELPHALAN
     Dosage: 230.78 MG, 1X
     Route: 042
     Dates: start: 20200113, end: 20200113
  4. CARMUSTINE [Suspect]
     Active Substance: CARMUSTINE
     Dosage: 370.89 MILLIGRAM DAILY;
     Route: 042
     Dates: start: 20201013, end: 20201013
  5. PLERIXAFOR [Suspect]
     Active Substance: PLERIXAFOR
     Dosage: UNK,THERAPY START DATE AND END DATE: ASKED BUT UNKNOWN
     Route: 065
  6. ENOXAPARIN SODIUM [Suspect]
     Active Substance: ENOXAPARIN SODIUM
     Indication: Prophylaxis
     Dosage: 120 MILLIGRAM DAILY; THERAPY  END DATE: ASKED BUT UNKNOWN
     Route: 058
     Dates: start: 20200807
  7. ENOXAPARIN SODIUM [Suspect]
     Active Substance: ENOXAPARIN SODIUM
     Dosage: 120 MILLIGRAM DAILY; 60MG, THERAPY  END DATE: ASKED BUT UNKNOWN
     Route: 058
     Dates: start: 20200807
  8. CYTARABINE [Suspect]
     Active Substance: CYTARABINE
     Dosage: 370.89 MG, 1X
     Route: 042
     Dates: start: 20201013, end: 20201013
  9. CYTARABINE [Suspect]
     Active Substance: CYTARABINE
     Dosage: 659.36 MILLIGRAM DAILY; 329.68 MG, BID
     Route: 042
     Dates: start: 20201013, end: 20201016
  10. INVESTIGATIONAL PRODUCT [Suspect]
     Active Substance: INVESTIGATIONAL PRODUCT
     Dosage: THERAPY START DATE AND END DATE: ASKED BUT UNKNOWN
     Route: 065
  11. MEPERIDINE HYDROCHLORIDE [Suspect]
     Active Substance: MEPERIDINE HYDROCHLORIDE
     Indication: Adverse event
     Dosage: 50 MG
     Route: 042
     Dates: start: 20210119, end: 20210119
  12. MEPERIDINE HYDROCHLORIDE [Suspect]
     Active Substance: MEPERIDINE HYDROCHLORIDE
     Dosage: 25 MG
     Route: 042
     Dates: start: 20210120, end: 20210120
  13. OXYGEN [Concomitant]
     Active Substance: OXYGEN
     Indication: Adverse event
     Dosage: 2000 ML INFREQUENT, THERAPY  END DATE: ASKED BUT UNKNOWN
     Route: 055
     Dates: start: 20210118
  14. PLATELETS [Concomitant]
     Active Substance: HUMAN PLATELET, ALLOGENIC
     Indication: Adverse event
     Dosage: UNK UNK, 1X
     Route: 042
     Dates: start: 20210119, end: 20210119
  15. PLATELETS [Concomitant]
     Active Substance: HUMAN PLATELET, ALLOGENIC
     Dosage: UNK UNK, 1X
     Route: 042
     Dates: start: 20210125, end: 20210126
  16. PLATELETS [Concomitant]
     Active Substance: HUMAN PLATELET, ALLOGENIC
     Dosage: UNK UNK,
     Route: 042
     Dates: start: 20210127, end: 20210127
  17. PLATELETS [Concomitant]
     Active Substance: HUMAN PLATELET, ALLOGENIC
     Dosage: UNK UNK,
     Route: 042
     Dates: start: 20210115, end: 20210115
  18. PLATELETS [Concomitant]
     Active Substance: HUMAN PLATELET, ALLOGENIC
     Dosage: UNK UNK, 1X
     Route: 042
     Dates: start: 20201023, end: 20201023
  19. PLATELETS [Concomitant]
     Active Substance: HUMAN PLATELET, ALLOGENIC
     Dosage: UNK UNK, 1X
     Route: 042
     Dates: start: 20210113, end: 20210114
  20. PLATELETS [Concomitant]
     Active Substance: HUMAN PLATELET, ALLOGENIC
     Dosage: UNK UNK, 1X
     Route: 042
     Dates: start: 20210128, end: 20210129
  21. PLATELETS [Concomitant]
     Active Substance: HUMAN PLATELET, ALLOGENIC
     Dosage: UNK UNK, 1X
     Route: 042
     Dates: start: 20201025, end: 20201025
  22. PLATELETS [Concomitant]
     Active Substance: HUMAN PLATELET, ALLOGENIC
     Dosage: UNK UNK, BID
     Route: 042
     Dates: start: 20210124, end: 20210124
  23. PLATELETS [Concomitant]
     Active Substance: HUMAN PLATELET, ALLOGENIC
     Dosage: UNK UNK, 1X
     Route: 042
     Dates: start: 20201027, end: 20201027
  24. PLATELETS [Concomitant]
     Active Substance: HUMAN PLATELET, ALLOGENIC
     Dosage: THERAPY START DATE AND END DATE: ASKED BUT UNKNOWN
     Route: 042
  25. VANCOMYCIN [Concomitant]
     Active Substance: VANCOMYCIN
     Indication: Adverse event
     Dosage: UNK,THERAPY  END DATE: ASKED BUT UNKNOWN
     Route: 042
     Dates: start: 20210122
  26. VANCOMYCIN [Concomitant]
     Active Substance: VANCOMYCIN
     Indication: Adverse event
     Dosage: UNK
     Route: 042
     Dates: start: 20210127, end: 20210128
  27. VANCOMYCIN [Concomitant]
     Active Substance: VANCOMYCIN
     Dosage: UNK,THERAPY  END DATE: ASKED BUT UNKNOWN
     Route: 042
     Dates: start: 20210122
  28. ATENATIV [Concomitant]
     Active Substance: ANTITHROMBIN III HUMAN
     Indication: Adverse event
     Dosage: 1.5 THOUSAND IU
     Route: 042
     Dates: start: 20200907, end: 20200907
  29. ATENATIV [Concomitant]
     Active Substance: ANTITHROMBIN III HUMAN
     Dosage: 1.5 THOUSAND IU
     Route: 042
     Dates: start: 20200901, end: 20200901
  30. MEROPENEM [Concomitant]
     Active Substance: MEROPENEM
     Indication: Adverse event
     Dosage: UNK
     Route: 042
     Dates: start: 20201026, end: 20201029
  31. MEROPENEM [Concomitant]
     Active Substance: MEROPENEM
     Dosage: UNK
     Route: 042
     Dates: start: 20210115, end: 20210129
  32. VALACYCLOVIR HYDROCHLORIDE [Concomitant]
     Active Substance: VALACYCLOVIR HYDROCHLORIDE
     Indication: Prophylaxis
     Dosage: 1000 MILLIGRAM DAILY; THERAPY START DATE : ASKED BUT UNKNOWN
     Route: 048
     Dates: end: 20210129
  33. KONAKION [Concomitant]
     Active Substance: PHYTONADIONE
     Indication: Adverse event
     Dosage: UNK
     Route: 042
     Dates: start: 20210118, end: 20210121
  34. PLASMA, FRESH FROZEN [Concomitant]
     Active Substance: HUMAN PLASMA
     Dosage: THERAPY START DATE AND END DATE: ASKED BUT UNKNOWN
     Route: 042
  35. AMPHOTERICIN B [Concomitant]
     Active Substance: AMPHOTERICIN B
     Indication: Prophylaxis
     Dosage: 2000 GRAM DAILY; THERAPY START DATE AND END DATE: ASKED BUT UNKNOWN
     Route: 048
  36. LINEZOLID [Concomitant]
     Active Substance: LINEZOLID
     Indication: Adverse event
     Dosage: UNK
     Route: 042
     Dates: start: 20210128, end: 20210129
  37. SULFAMETHOXAZOLE\TRIMETHOPRIM [Concomitant]
     Active Substance: SULFAMETHOXAZOLE\TRIMETHOPRIM
     Indication: Prophylaxis
     Dosage: 960 MG,THERAPY START DATE : ASKED BUT UNKNOWN
     Route: 048
     Dates: end: 20210129
  38. SULFAMETHOXAZOLE\TRIMETHOPRIM [Concomitant]
     Active Substance: SULFAMETHOXAZOLE\TRIMETHOPRIM
     Dosage: 960MG,THERAPY START DATE AND END DATE: ASKED BUT UNKNOWN
     Route: 048
  39. VALACYCLOVIR HYDROCHLORIDE [Concomitant]
     Active Substance: VALACYCLOVIR HYDROCHLORIDE
     Indication: Prophylaxis
     Dosage: 1000 MILLIGRAM DAILY; THERAPY START DATE AND END DATE: ASKED BUT UNKNOWN
     Route: 048
  40. VALACYCLOVIR HYDROCHLORIDE [Concomitant]
     Active Substance: VALACYCLOVIR HYDROCHLORIDE
     Dosage: 500MG,THERAPY START DATE AND END DATE: ASKED BUT UNKNOWN
     Route: 048
  41. NOREPINEPHRINE [Concomitant]
     Active Substance: NOREPINEPHRINE
     Indication: Adverse event
     Dosage: UNK,
     Route: 042
     Dates: start: 20210122, end: 20210129
  42. NOREPINEPHRINE [Concomitant]
     Active Substance: NOREPINEPHRINE
     Dosage: UNK,THERAPY START DATE AND END DATE: ASKED BUT UNKNOWN
     Route: 042
  43. PREDNISOLONE [Concomitant]
     Active Substance: PREDNISOLONE
     Indication: Adverse event
     Dosage: 100 MG,THERAPY START DATE AND END DATE: ASKED BUT UNKNOWN
     Route: 048
  44. PREDNISOLONE [Concomitant]
     Active Substance: PREDNISOLONE
     Dosage: 100MG
     Route: 048
     Dates: start: 20210119, end: 20210119
  45. FLUCONAZOLE [Concomitant]
     Active Substance: FLUCONAZOLE
     Dosage: THERAPY START DATE AND END DATE: ASKED BUT UNKNOWN
  46. FLUCONAZOLE [Concomitant]
     Active Substance: FLUCONAZOLE
     Dosage: 100 MILLIGRAM DAILY; 100 MG, QD
     Route: 048
     Dates: start: 20201027, end: 20201105
  47. ENTECAVIR [Concomitant]
     Active Substance: ENTECAVIR
     Indication: Premedication
     Dosage: .5 MILLIGRAM DAILY; THERAPY START DATE: ASKED BUT UNKNOWN
     Route: 048
     Dates: end: 20210129
  48. SULFAMETHOXAZOLE\TRIMETHOPRIM [Concomitant]
     Active Substance: SULFAMETHOXAZOLE\TRIMETHOPRIM
     Indication: Prophylaxis
     Dosage: 960 MG, Q3W,THERAPY START DATE AND END DATE: ASKED BUT UNKNOWN
     Route: 048
  49. PIPERACILLIN [Concomitant]
     Active Substance: PIPERACILLIN
     Indication: Adverse event
     Dosage: UNK
     Route: 042
     Dates: start: 20210113, end: 20210115
  50. PIPERACILLIN [Concomitant]
     Active Substance: PIPERACILLIN
     Dosage: 12 GRAM DAILY; 4 G
     Route: 042
     Dates: start: 20201022, end: 20201026
  51. FRESH FROZEN PLASMA [Concomitant]
     Active Substance: HUMAN PLASMA
     Indication: Adverse event
     Dosage: UNK UNK
     Route: 042
     Dates: start: 20210125, end: 20210125
  52. FRESH FROZEN PLASMA [Concomitant]
     Active Substance: HUMAN PLASMA
     Dosage: UNK UNK, 5ID
     Route: 042
     Dates: start: 20210127, end: 20210127
  53. FRESH FROZEN PLASMA [Concomitant]
     Active Substance: HUMAN PLASMA
     Dosage: THERAPY START DATE AND END DATE: ASKED BUT UNKNOWN
     Route: 042
  54. DEXAMETHASONE [Concomitant]
     Active Substance: DEXAMETHASONE
     Indication: Adverse event
     Dosage: 4 MILLIGRAM DAILY;
     Route: 042
     Dates: start: 20210119, end: 20210119
  55. DEXAMETHASONE [Concomitant]
     Active Substance: DEXAMETHASONE
     Dosage: 40 MG
     Route: 048
     Dates: start: 20210122, end: 20210126
  56. INNOHEP [Concomitant]
     Active Substance: TINZAPARIN SODIUM
     Indication: Prophylaxis
     Dosage: 12000IU,THERAPY START DATE AND END DATE: ASKED BUT UNKNOWN
     Route: 058
  57. INNOHEP [Concomitant]
     Active Substance: TINZAPARIN SODIUM
     Dosage: 12000 IU, Q4W,THERAPY START DATE AND END DATE: ASKED BUT UNKNOWN
     Route: 058
  58. HUMAN RED BLOOD CELL [Concomitant]
     Active Substance: HUMAN RED BLOOD CELL
     Indication: Adverse event
     Dosage: UNK UNK,
     Route: 042
     Dates: start: 20210123, end: 20210123
  59. HUMAN RED BLOOD CELL [Concomitant]
     Active Substance: HUMAN RED BLOOD CELL
     Dosage: UNK UNK,
     Route: 042
     Dates: start: 20210126, end: 20210126
  60. HUMAN RED BLOOD CELL [Concomitant]
     Active Substance: HUMAN RED BLOOD CELL
     Dosage: UNK UNK,
     Route: 042
     Dates: start: 20210125, end: 20210125
  61. HUMAN RED BLOOD CELL [Concomitant]
     Active Substance: HUMAN RED BLOOD CELL
     Dosage: UNK UNK,
     Route: 042
     Dates: start: 20210128, end: 20210128
  62. HUMAN RED BLOOD CELL [Concomitant]
     Active Substance: HUMAN RED BLOOD CELL
     Dosage: UNK UNK,
     Route: 042
     Dates: start: 20210122, end: 20210122
  63. HUMAN RED BLOOD CELL [Concomitant]
     Active Substance: HUMAN RED BLOOD CELL
     Dosage: UNK UNK, 5ID
     Route: 042
     Dates: start: 20210127, end: 20210127
  64. HUMAN RED BLOOD CELL [Concomitant]
     Active Substance: HUMAN RED BLOOD CELL
     Dosage: UNK,THERAPY START DATE AND END DATE: ASKED BUT UNKNOWN
     Route: 042
  65. HUMAN RED BLOOD CELL [Concomitant]
     Active Substance: HUMAN RED BLOOD CELL
     Dosage: UNK UNK
     Route: 042
     Dates: start: 20210129, end: 20210129
  66. HUMAN RED BLOOD CELL [Concomitant]
     Active Substance: HUMAN RED BLOOD CELL
     Dosage: UNK UNK,
     Route: 042
     Dates: start: 20210124, end: 20210124
  67. HUMAN RED BLOOD CELL [Concomitant]
     Active Substance: HUMAN RED BLOOD CELL
     Dosage: THERAPY START DATE AND END DATE: ASKED BUT UNKNOWN
     Route: 042
  68. PROTHROMBIN [Concomitant]
     Active Substance: PROTHROMBIN
     Indication: Adverse event
     Dosage: THERAPY START DATE AND END DATE: ASKED BUT UNKNOWN
     Route: 042
  69. PROTHROMBIN [Concomitant]
     Active Substance: PROTHROMBIN
     Dosage: THERAPY START DATE AND END DATE: ASKU
     Route: 042
  70. TRANEXAMIC ACID [Concomitant]
     Active Substance: TRANEXAMIC ACID
     Indication: Adverse event
     Dosage: 3 GRAM DAILY; THERAPY START DATE: ASKED BUT UNKNOWN
     Route: 042
     Dates: start: 20210119
  71. TRANEXAMIC ACID [Concomitant]
     Active Substance: TRANEXAMIC ACID
     Dosage: UNK,THERAPY START DATE AND END DATE: ASKED BUT UNKNOWN
     Route: 042
  72. PANTOPRAZOLE [Concomitant]
     Active Substance: PANTOPRAZOLE
     Indication: Prophylaxis
     Dosage: 40MG,THERAPY START DATE : ASKED BUT UNKNOWN
     Route: 048
     Dates: end: 20210129
  73. PANTOPRAZOLE [Concomitant]
     Active Substance: PANTOPRAZOLE
     Dosage: 40 MILLIGRAM DAILY; 40 MG,THERAPY START DATE AND END DATE: ASKED BUT UNKNOWN
     Route: 048
  74. FIBRINOGEN [Concomitant]
     Active Substance: FIBRINOGEN HUMAN
     Indication: Adverse event
     Dosage: THERAPY START DATE AND END DATE: ASKED BUT UNKNOWN
     Route: 042
  75. TAZOBACTAM [Concomitant]
     Active Substance: TAZOBACTAM
     Dosage: 0.5 G
     Route: 042
     Dates: start: 20201022, end: 20201026
  76. TAZOBACTAM [Concomitant]
     Active Substance: TAZOBACTAM
     Dosage: UNK
     Route: 042
     Dates: start: 20210113, end: 20210115
  77. MSI [Concomitant]
     Active Substance: MORPHINE SULFATE
     Indication: Adverse event
     Dosage: 2.5 MG INFREQUENT,THERAPY  END DATE: ASKED BUT UNKNOWN
     Route: 058
     Dates: start: 20210118
  78. ACETAMINOPHEN [Concomitant]
     Active Substance: ACETAMINOPHEN
     Indication: Adverse event
     Dosage: 1 G,THERAPY  END DATE: ASKED BUT UNKNOWN
     Route: 048
     Dates: start: 20210118
  79. FOLIC ACID [Concomitant]
     Active Substance: FOLIC ACID
     Indication: Prophylaxis
     Dosage: 04MG,THERAPY START DATE AND END DATE: ASKED BUT UNKNOWN
     Route: 048
  80. FOLIC ACID [Concomitant]
     Active Substance: FOLIC ACID
     Dosage: .4 MILLIGRAM DAILY; THERAPY START DATE AND END DATE: ASKED BUT UNKNOWN
     Route: 048
  81. MCP [Concomitant]
     Active Substance: METOCLOPRAMIDE HYDROCHLORIDE
     Dosage: THERAPY START DATE AND END DATE: ASKED BUT UNKNOWN
  82. MCP [Concomitant]
     Active Substance: METOCLOPRAMIDE HYDROCHLORIDE
     Dosage: UNK,THERAPY START DATE AND END DATE: ASKED BUT UNKNOWN
     Route: 048
  83. DIMENHYDRINATE [Concomitant]
     Active Substance: DIMENHYDRINATE
     Dosage: 4 MILLIGRAM DAILY;
     Route: 042
     Dates: start: 20210119, end: 20210119
  84. DIMENHYDRINATE [Concomitant]
     Active Substance: DIMENHYDRINATE
     Dosage: THERAPY START DATE AND END DATE: ASKED BUT UNKNOWN
     Route: 042
  85. CALCIUM [Concomitant]
     Active Substance: CALCIUM
     Indication: Adverse event
     Dosage: THERAPY START DATE AND END DATE: ASKED BUT UNKNOWN
     Route: 042
  86. ENTECAVIR [ENTECAVIR MONOHYDRATE] [Concomitant]
     Dosage: .5 MILLIGRAM DAILY; THERAPY START DATE AND END DATE: ASKED BUT UNKNOWN
     Route: 048
  87. ETOPOSIDE [Concomitant]
     Active Substance: ETOPOSIDE
     Indication: Adverse event
     Dosage: UNK,THERAPY  END DATE: ASKED BUT UNKNOWN
     Route: 042
     Dates: start: 20210122
  88. MEPERIDINE HYDROCHLORIDE [Concomitant]
     Active Substance: MEPERIDINE HYDROCHLORIDE
     Indication: Adverse event
     Dosage: UNK
     Route: 042
     Dates: start: 20210118, end: 20210118

REACTIONS (9)
  - Haemophagocytic lymphohistiocytosis [Fatal]
  - Leukopenia [Not Recovered/Not Resolved]
  - Febrile neutropenia [Recovered/Resolved]
  - Body temperature increased [Unknown]
  - Hypotension [Unknown]
  - Frequent bowel movements [Unknown]
  - Pyrexia [Not Recovered/Not Resolved]
  - Escherichia infection [Not Recovered/Not Resolved]
  - Diarrhoea [Recovered/Resolved]

NARRATIVE: CASE EVENT DATE: 20201022
